FAERS Safety Report 7277227-7 (Version None)
Quarter: 2011Q1

REPORT INFORMATION
  Report Type: 
  Country: None (occurrence: None)
  Receive Date: 20110113
  Receipt Date: 20110113
  Transmission Date: 20110831
  Serious: Yes (Other)
  Sender: FDA-Public Use
  Company Number: None

PATIENT
  Age: 61 Year
  Sex: Male
  Weight: 99.7913 kg

DRUGS (2)
  1. KROGER ALCOHOL SWABS N/A 1-800-288-1288 [Suspect]
     Indication: DIABETES MELLITUS
     Dosage: 1 SWAB 6 TIMES DAILY CUTANEOUS
     Route: 003
     Dates: start: 20101225, end: 20101231
  2. KROGER ALCOHOL SWABS N/A 1-800-288-1288 [Suspect]
     Indication: BLOOD GLUCOSE
     Dosage: 1 SWAB 6 TIMES DAILY CUTANEOUS
     Route: 003
     Dates: start: 20101225, end: 20101231

REACTIONS (4)
  - DIARRHOEA [None]
  - PRODUCT CONTAMINATION MICROBIAL [None]
  - PRODUCT QUALITY ISSUE [None]
  - NAUSEA [None]
